FAERS Safety Report 9195765 (Version 2)
Quarter: 2013Q2

REPORT INFORMATION
  Report Type: Spontaneous
  Country: US (occurrence: None)
  Receive Date: 20120703
  Receipt Date: 20121031
  Transmission Date: 20140414
  Serious: No
  Sender: FDA-Public Use
  Company Number: PHEH2012US010661

PATIENT
  Age: 59 Year
  Sex: Female

DRUGS (12)
  1. GILENYA [Suspect]
     Route: 048
  2. LOTENSIN (BENAZEPRIL HYDROCHLORIDE) [Concomitant]
  3. METFORMIN (METFORMIN) [Concomitant]
  4. PRAVACHOL (PRAVASTATIN SODIUM) [Concomitant]
  5. PAXIL (PAROXETINE HYDROCHLORIDE) [Concomitant]
  6. TYLENOL (PARACETAMOL) [Concomitant]
  7. TUMS (CALCIUM CARBONATE) [Concomitant]
  8. EXCEDRIN MIGRAINE (ACETYLSALICYLIC ACID, CAFFEINE, PARACETAMOL) [Concomitant]
  9. IBUPROFEN (IBUPROFEN) [Concomitant]
  10. ASPIRIN (ACETYLSALICYLIC ACID) [Concomitant]
  11. PHENERGAN (PROMETHAZINE HYDROCHLORIDE) [Concomitant]
  12. IMODIUM (LOPERAMIDE HYDROCHLORIDE) [Concomitant]

REACTIONS (1)
  - Periarthritis [None]
